FAERS Safety Report 19256926 (Version 3)
Quarter: 2021Q3

REPORT INFORMATION
  Report Type: Report from Study
  Country: GB (occurrence: GB)
  Receive Date: 20210514
  Receipt Date: 20210702
  Transmission Date: 20211014
  Serious: No
  Sender: FDA-Public Use
  Company Number: NVSC2021GB099988

PATIENT
  Age: 42 Year
  Sex: Female

DRUGS (2)
  1. COSENTYX [Suspect]
     Active Substance: SECUKINUMAB
     Indication: PSORIASIS
     Dosage: 300 MG, QMO
     Route: 058
     Dates: start: 20200129
  2. COSENTYX [Suspect]
     Active Substance: SECUKINUMAB
     Dosage: 300 MG, QMO
     Route: 065

REACTIONS (14)
  - Product availability issue [Unknown]
  - Pain [Unknown]
  - Gait disturbance [Unknown]
  - Incorrect dose administered by device [Unknown]
  - Psoriasis [Unknown]
  - Depressed mood [Unknown]
  - Pain in jaw [Unknown]
  - Feeding disorder [Unknown]
  - Accidental exposure to product [Unknown]
  - Oral pain [Unknown]
  - Lip pain [Unknown]
  - Mobility decreased [Unknown]
  - Speech disorder [Unknown]
  - Device issue [Unknown]

NARRATIVE: CASE EVENT DATE: 20210430
